FAERS Safety Report 7456596-9 (Version None)
Quarter: 2011Q2

REPORT INFORMATION
  Report Type: 
  Country: None (occurrence: None)
  Receive Date: 20110503
  Receipt Date: 20100611
  Transmission Date: 20111010
  Serious: No
  Sender: FDA-Public Use
  Company Number: US-MUTUAL PHARMACEUTICAL COMPANY, INC.-1-22986710

PATIENT
  Sex: Female
  Weight: 56.75 kg

DRUGS (3)
  1. LOVASTATIN [Suspect]
     Indication: BLOOD CHOLESTEROL INCREASED
     Route: 048
     Dates: start: 19950101
  2. USE OF UNSPECIFIED BRAND LOVASTATIN SINCE --/--/1995 [Concomitant]
  3. DICLOFENAC 75 MG ONCE DAILY, [Concomitant]

REACTIONS (4)
  - WEIGHT DECREASED [None]
  - MALAISE [None]
  - ABDOMINAL PAIN [None]
  - FLATULENCE [None]
